FAERS Safety Report 8922658 (Version 1)
Quarter: 2012Q4

REPORT INFORMATION
  Report Type: 
  Country: US (occurrence: US)
  Receive Date: 20121123
  Receipt Date: 20121123
  Transmission Date: 20130627
  Serious: No
  Sender: FDA-Public Use
  Company Number: PHEH2012US023021

PATIENT
  Age: 73 Year
  Sex: Female

DRUGS (14)
  1. TASIGNA [Suspect]
     Indication: CHRONIC MYELOID LEUKAEMIA
     Dosage: 400 mg, BID
     Route: 048
     Dates: start: 200902
  2. NITROBID [Concomitant]
  3. ASPIRIN [Concomitant]
  4. KLOR-CON [Concomitant]
  5. FUROSEMIDE [Concomitant]
  6. SIMVASTATIN [Concomitant]
  7. RAMIPRIL [Concomitant]
  8. LOPRESSOR [Concomitant]
  9. PLAVIX [Concomitant]
  10. TRAMADOL [Concomitant]
  11. CELEBREX [Concomitant]
  12. TYLENOL [Concomitant]
  13. NEXIUM [Concomitant]
  14. REGLAN [Concomitant]

REACTIONS (1)
  - Alopecia [Not Recovered/Not Resolved]
